FAERS Safety Report 8016825-X (Version None)
Quarter: 2012Q1

REPORT INFORMATION
  Report Type: 
  Country: None (occurrence: None)
  Receive Date: 20120102
  Receipt Date: 20111222
  Transmission Date: 20120608
  Serious: Yes (Other)
  Sender: FDA-Public Use
  Company Number: JP-BRISTOL-MYERS SQUIBB COMPANY-16317638

PATIENT
  Sex: Female

DRUGS (2)
  1. METFORMIN HCL [Suspect]
     Route: 048
  2. AMARYL [Suspect]

REACTIONS (2)
  - HYPOGLYCAEMIA [None]
  - ACCIDENTAL EXPOSURE [None]
